FAERS Safety Report 4618363-0 (Version None)
Quarter: 2005Q1

REPORT INFORMATION
  Report Type: 
  Country: None (occurrence: None)
  Receive Date: 20050323
  Receipt Date: 20050311
  Transmission Date: 20050727
  Serious: Yes (Hospitalization)
  Sender: FDA-Public Use
  Company Number: K200500030

PATIENT
  Age: 60 Year
  Sex: Male

DRUGS (9)
  1. ALTACE [Suspect]
     Indication: CARDIAC FAILURE
     Dosage: 10 MG, QD, ORAL
     Route: 048
     Dates: start: 20010301
  2. ROSUVASTATIN (ROSUVASTATIN) TABLET, 10MG [Suspect]
     Indication: CARDIAC FAILURE CHRONIC
     Dosage: 10 MG, QD, ORAL
     Route: 048
     Dates: start: 20040512, end: 20040918
  3. BUMETANIDE [Concomitant]
  4. CARVEDILOL [Concomitant]
  5. ALBYL-E (MAGNESIUM OXIDE, ACETYLSALICYLIC ACID) [Concomitant]
  6. LOSEC (OMEPRAZOLE MAGNESIUM) [Concomitant]
  7. ALOPAM (OXAZEPAM) [Concomitant]
  8. ACETAMINOPHEN [Concomitant]
  9. PARALGIN FORTE (PARACETAMOL/CODEINE PHOSPHATE) [Concomitant]

REACTIONS (5)
  - DIARRHOEA [None]
  - HYPOTENSION [None]
  - PHLEBITIS [None]
  - PNEUMONIA [None]
  - RENAL FAILURE [None]
